FAERS Safety Report 23944112 (Version 1)
Quarter: 2024Q2

REPORT INFORMATION
  Report Type: Spontaneous
  Country: IT (occurrence: IT)
  Receive Date: 20240606
  Receipt Date: 20240606
  Transmission Date: 20240716
  Serious: Yes (Death, Hospitalization, Other)
  Sender: FDA-Public Use
  Company Number: IT-STADA-01249439

PATIENT

DRUGS (2)
  1. APIXABAN [Suspect]
     Active Substance: APIXABAN
     Indication: Atrial fibrillation
     Dosage: 10 MILLIGRAM, DAILY
     Route: 065
  2. ENOXAPARIN SODIUM [Suspect]
     Active Substance: ENOXAPARIN SODIUM
     Indication: Atrial fibrillation
     Dosage: UNK
     Route: 065

REACTIONS (8)
  - Cardiac arrest [Fatal]
  - Circulatory collapse [Fatal]
  - Renal impairment [Fatal]
  - Factor X deficiency [Fatal]
  - Hepatic function abnormal [Fatal]
  - Anaemia [Fatal]
  - Coagulopathy [Fatal]
  - Condition aggravated [Fatal]
